FAERS Safety Report 7598423-5 (Version None)
Quarter: 2011Q3

REPORT INFORMATION
  Report Type: 
  Country: None (occurrence: None)
  Receive Date: 20110708
  Receipt Date: 20110629
  Transmission Date: 20111222
  Serious: Yes (Hospitalization)
  Sender: FDA-Public Use
  Company Number: BR-ASTRAZENECA-2010SE38573

PATIENT
  Age: 83 Year
  Sex: Female
  Weight: 52 kg

DRUGS (4)
  1. ATACAND HCT [Suspect]
     Dosage: 16/12.5 MG
     Route: 048
     Dates: start: 20100801
  2. ATACAND HCT [Suspect]
     Indication: HYPERTENSION
     Dosage: 16/12.5 MG, DAILY
     Route: 048
     Dates: start: 20100401
  3. LANZOPRAZOLE [Concomitant]
     Indication: GASTROOESOPHAGEAL REFLUX DISEASE
     Dosage: TWO TIMES DAILY
     Route: 048
     Dates: start: 20080101
  4. ATACAND HCT [Suspect]
     Dosage: 8/12.5 MG, DAILY
     Route: 048
     Dates: start: 20100501, end: 20100801

REACTIONS (4)
  - VASCULAR GRAFT [None]
  - BLOOD PRESSURE INADEQUATELY CONTROLLED [None]
  - DRUG INEFFECTIVE [None]
  - ARRHYTHMIA [None]
